FAERS Safety Report 25825490 (Version 2)
Quarter: 2025Q4

REPORT INFORMATION
  Report Type: Spontaneous
  Country: AR (occurrence: AR)
  Receive Date: 20250919
  Receipt Date: 20251016
  Transmission Date: 20260119
  Serious: Yes (Other)
  Sender: PFIZER
  Company Number: AR-PFIZER INC-202500182779

PATIENT
  Age: 72 Year
  Sex: Female

DRUGS (1)
  1. ENBREL [Suspect]
     Active Substance: ETANERCEPT
     Indication: Rheumatoid arthritis
     Dosage: 25 MG, WEEKLY
     Dates: start: 20021208

REACTIONS (6)
  - Cellulitis [Unknown]
  - Injection site pain [Unknown]
  - Injection site inflammation [Unknown]
  - Off label use [Unknown]
  - Intentional product misuse [Unknown]
  - Poor peripheral circulation [Unknown]

NARRATIVE: CASE EVENT DATE: 20250901
